FAERS Safety Report 11866612 (Version 9)
Quarter: 2018Q2

REPORT INFORMATION
  Report Type: Report from Study
  Country: GB (occurrence: GB)
  Receive Date: 20151224
  Receipt Date: 20180508
  Transmission Date: 20180711
  Serious: Yes (Other)
  Sender: FDA-Public Use
  Company Number: GB-PFIZER INC-2015342635

PATIENT
  Age: 65 Year
  Sex: Female
  Weight: 58.4 kg

DRUGS (13)
  1. FOLINIC ACID [Concomitant]
     Active Substance: LEUCOVORIN
     Indication: COLORECTAL CANCER
     Dosage: UNK
     Route: 065
     Dates: start: 20150702, end: 20150812
  2. CYCLIZINE [Concomitant]
     Active Substance: CYCLIZINE
     Indication: NAUSEA
     Dosage: 50 MG, AS NEEDED
     Route: 048
     Dates: start: 20150812
  3. IRINOTECAN HCL [Suspect]
     Active Substance: IRINOTECAN HYDROCHLORIDE
     Indication: COLORECTAL CANCER
     Dosage: 180 MG/M2, DAY 1 OF EACH 14 DAY CYCLE
     Route: 042
     Dates: start: 20150702
  4. 5-FLUOROURACIL /00098801/ [Suspect]
     Active Substance: FLUOROURACIL
     Indication: COLORECTAL CANCER
     Dosage: 400 MG/M2, OVER 15 MINS (DAY 1 OF EACH 21 DAY CYCLE, 1 IN 2 WK)
     Route: 040
     Dates: start: 20150702
  5. 5-FLUOROURACIL /00098801/ [Suspect]
     Active Substance: FLUOROURACIL
     Dosage: 2400 MG/M2, OVER 46 HOURS (DAY 1 OF EACH 14 DAY CYCLE, 1 IN 2 WK)
     Route: 042
     Dates: start: 20150702
  6. GAVISCON [Concomitant]
     Active Substance: ALUMINUM HYDROXIDE\MAGNESIUM CARBONATE
     Indication: NAUSEA
     Dosage: 10 ML, AS NEEDED
     Route: 048
     Dates: start: 20150622
  7. CODEINE PHOSPHATE [Concomitant]
     Active Substance: CODEINE PHOSPHATE
     Indication: STOMA CARE
     Dosage: 240 MG, DAILY (60 MG, QID)
     Route: 048
     Dates: start: 20150501
  8. DIORALYTE (ORAL REHYDRATION SALT) [Concomitant]
     Indication: STOMA CARE
     Dosage: 1 DF, 1X/DAY (1 IN 1 D)
     Route: 048
     Dates: start: 20150501
  9. DEXAMETHASONE. [Concomitant]
     Active Substance: DEXAMETHASONE
     Indication: PROPHYLAXIS OF NAUSEA AND VOMITING
     Dosage: 4 MG, QD
     Route: 048
     Dates: start: 20150813, end: 20150815
  10. METOCLOPRAMIDE. [Concomitant]
     Active Substance: METOCLOPRAMIDE
     Indication: NAUSEA
     Dosage: 10 MG, AS NEEDED
     Route: 048
     Dates: start: 20150703
  11. LOPERAMIDE [Concomitant]
     Active Substance: LOPERAMIDE
     Indication: STOMA CARE
     Dosage: 8 MG (2 MG, 4 IN 1 D)
     Route: 048
     Dates: start: 20150501
  12. LANSOPRAZOLE. [Concomitant]
     Active Substance: LANSOPRAZOLE
     Indication: GASTROOESOPHAGEAL REFLUX PROPHYLAXIS
     Dosage: 30 MG, DAILY
     Route: 048
     Dates: start: 20150501
  13. BLINDED THERAPY [Suspect]
     Active Substance: INVESTIGATIONAL PRODUCT
     Indication: COLORECTAL CANCER
     Dosage: UNK, ON DAY 2 THROUGH TO 5 OF EACH 21 DAY CYCLE (2 IN 1 DAY)
     Route: 048
     Dates: start: 20150702

REACTIONS (4)
  - Blood creatinine increased [Recovered/Resolved]
  - Gastrointestinal stoma output increased [Unknown]
  - Hyponatraemia [Recovered/Resolved]
  - Renal impairment [Unknown]

NARRATIVE: CASE EVENT DATE: 20150825
